FAERS Safety Report 21285245 (Version 1)
Quarter: 2022Q3

REPORT INFORMATION
  Report Type: Spontaneous
  Country: CZ (occurrence: CZ)
  Receive Date: 20220902
  Receipt Date: 20220902
  Transmission Date: 20221026
  Serious: Yes (Death, Other)
  Sender: FDA-Public Use
  Company Number: CZ-NOVARTISPH-NVSC2021CZ272824

PATIENT
  Age: 79 Year
  Sex: Female

DRUGS (14)
  1. KYMRIAH [Suspect]
     Active Substance: TISAGENLECLEUCEL
     Indication: Diffuse large B-cell lymphoma
     Dosage: UNK, ONCE/SINGLE
     Route: 042
     Dates: start: 20200601
  2. ACYCLOVIR [Concomitant]
     Active Substance: ACYCLOVIR
     Indication: Product used for unknown indication
     Dosage: 400 MG, BID (1-0-1)
     Route: 065
  3. MAGNESIUM CARBONATE\MAGNESIUM OXIDE [Concomitant]
     Active Substance: MAGNESIUM CARBONATE\MAGNESIUM OXIDE
     Indication: Product used for unknown indication
     Dosage: 365 MG (1-0-1)
     Route: 065
  4. CIPROFLOXACIN HYDROCHLORIDE [Concomitant]
     Active Substance: CIPROFLOXACIN HYDROCHLORIDE
     Indication: Product used for unknown indication
     Dosage: 500 MG, BID (1-0-1)
     Route: 065
  5. FLUCONAZOLE [Concomitant]
     Active Substance: FLUCONAZOLE
     Indication: Product used for unknown indication
     Dosage: 100 MG, BID (1-0-1)
     Route: 065
  6. NEBIVOLOL [Concomitant]
     Active Substance: NEBIVOLOL
     Indication: Product used for unknown indication
     Dosage: 5 MG, (1/2-0-0)
     Route: 065
  7. RAMIPRIL [Concomitant]
     Active Substance: RAMIPRIL
     Indication: Product used for unknown indication
     Dosage: 1.25 MG, QD (0-1-0)
     Route: 065
  8. CONTROLOC [Concomitant]
     Active Substance: PANTOPRAZOLE SODIUM
     Indication: Product used for unknown indication
     Dosage: 20 MG, QD (1-0-0) ON AN EMPTY STOMACH
     Route: 065
  9. ATROVENT [Concomitant]
     Active Substance: IPRATROPIUM BROMIDE
     Indication: Product used for unknown indication
     Dosage: 0.020 MG, BID (1-2 BREATH TWICE A DAY)
     Route: 065
  10. BISEPTOL [Concomitant]
     Active Substance: SULFAMETHOXAZOLE\TRIMETHOPRIM
     Indication: Product used for unknown indication
     Dosage: 400 MG, QD (0-1-0)
     Route: 065
  11. BISEPTOL [Concomitant]
     Active Substance: SULFAMETHOXAZOLE\TRIMETHOPRIM
     Dosage: 80 MG, QD (0-1-0)
     Route: 065
  12. VIGANTOL [Concomitant]
     Indication: Product used for unknown indication
     Dosage: 20 DRP, QW
     Route: 065
  13. APO ZOLPIDEM [Concomitant]
     Indication: Product used for unknown indication
     Dosage: 10 MG, QD (1/2 TABLET AT NIGHT)
     Route: 065
  14. FUROSEMIDE [Concomitant]
     Active Substance: FUROSEMIDE
     Indication: Product used for unknown indication
     Dosage: 40 MG
     Route: 065

REACTIONS (4)
  - Death [Fatal]
  - Cytokine release syndrome [Recovered/Resolved]
  - Hypotension [Unknown]
  - Pyrexia [Unknown]

NARRATIVE: CASE EVENT DATE: 20220803
